FAERS Safety Report 8156647-2 (Version None)
Quarter: 2012Q1

REPORT INFORMATION
  Report Type: 
  Country: None (occurrence: None)
  Receive Date: 20120103
  Receipt Date: 20111019
  Transmission Date: 20120608
  Serious: No
  Sender: FDA-Public Use
  Company Number: AE-2011-002052

PATIENT
  Age: 51 Year
  Sex: Female
  Weight: 54.4316 kg

DRUGS (3)
  1. PEGINTERFERON ALFA-2A [Concomitant]
  2. INCIVEK [Suspect]
     Dosage: ORAL
     Route: 048
     Dates: start: 20110824
  3. RIBAVIRIN [Concomitant]

REACTIONS (1)
  - GLOSSITIS [None]
